FAERS Safety Report 18584089 (Version 1)
Quarter: 2020Q4

REPORT INFORMATION
  Report Type: Spontaneous
  Country: IE (occurrence: IE)
  Receive Date: 20201207
  Receipt Date: 20201207
  Transmission Date: 20210114
  Serious: Yes (Other)
  Sender: FDA-Public Use
  Company Number: IE-AMGEN-IRLSP2020191098

PATIENT
  Age: 61 Year
  Sex: Male
  Weight: 110 kg

DRUGS (4)
  1. OTEZLA [Suspect]
     Active Substance: APREMILAST
     Indication: PSORIATIC ARTHROPATHY
     Dosage: 30 MG BID
     Route: 048
     Dates: start: 20200709, end: 20201113
  2. OTEZLA [Suspect]
     Active Substance: APREMILAST
     Indication: PSORIASIS
  3. KONVERGE [Concomitant]
     Active Substance: AMLODIPINE BESYLATE\OLMESARTAN MEDOXOMIL
     Indication: HYPERTENSION
     Dosage: UNK
  4. ATORVASTATIN [ATORVASTATIN CALCIUM] [Concomitant]
     Active Substance: ATORVASTATIN CALCIUM
     Indication: HYPERCHOLESTEROLAEMIA
     Dosage: 10 MILLIGRAM

REACTIONS (4)
  - Emotional disorder [Recovered/Resolved]
  - Irritability [Recovered/Resolved]
  - Depression [Recovered/Resolved]
  - Depressed mood [Recovered/Resolved with Sequelae]

NARRATIVE: CASE EVENT DATE: 20200807
